FAERS Safety Report 8155128-X (Version None)
Quarter: 2012Q1

REPORT INFORMATION
  Report Type: 
  Country: None (occurrence: None)
  Receive Date: 20120221
  Receipt Date: 20120209
  Transmission Date: 20120608
  Serious: Yes (Hospitalization)
  Sender: FDA-Public Use
  Company Number: US-ELI_LILLY_AND_COMPANY-US201105002616

PATIENT
  Sex: Male
  Weight: 102.49 kg

DRUGS (19)
  1. BYETTA [Suspect]
     Indication: TYPE 2 DIABETES MELLITUS
     Dosage: 5 UG, QD
  2. BYSTOLIC [Concomitant]
     Dosage: 2.5 MG, QD
     Route: 048
  3. ASPIRIN [Concomitant]
     Dosage: 81 MG, QD
     Route: 048
  4. HUMALOG [Concomitant]
     Indication: TYPE 2 DIABETES MELLITUS
     Dosage: UNK
     Route: 058
  5. MELOXICAM [Concomitant]
     Dosage: 15 MG, QD
     Route: 048
  6. FUROSEMIDE [Concomitant]
     Indication: SWELLING
     Dosage: 40 MG, PRN
     Route: 048
  7. BYETTA [Suspect]
     Dosage: 5 UG, BID
  8. METOPROLOL TARTRATE [Concomitant]
     Dosage: 100 MG, QD
     Route: 048
  9. LANTUS [Concomitant]
     Indication: TYPE 2 DIABETES MELLITUS
     Dosage: 30 UL, EACH EVENING
     Route: 058
  10. BYETTA [Suspect]
     Dosage: 5 UG, BID
  11. CYMBALTA [Concomitant]
     Dosage: 60 MG, QD
     Route: 048
  12. VYTORIN [Concomitant]
     Dosage: 40 MG, QD
     Route: 048
  13. FLONASE [Concomitant]
     Indication: NASAL SEPTAL OPERATION
     Dosage: UNK, PRN
  14. LEVOTHYROXINE SODIUM [Concomitant]
     Dosage: 100 UG, QD
     Route: 048
  15. BYETTA [Suspect]
     Dosage: 10 UG, BID
  16. NEXIUM [Concomitant]
     Dosage: UNK, PRN
     Route: 048
  17. ACTOS [Concomitant]
     Dosage: UNK, QD
     Route: 048
  18. LOSARTAN POTASSIUM [Concomitant]
     Dosage: 100 MG, QD
     Route: 048
  19. NITROGLYCERIN [Concomitant]
     Dosage: UNK, PRN
     Route: 048

REACTIONS (10)
  - RENAL FAILURE [None]
  - MALAISE [None]
  - VOMITING [None]
  - WEIGHT DECREASED [None]
  - ADVERSE DRUG REACTION [None]
  - SWELLING [None]
  - NAUSEA [None]
  - SURGERY [None]
  - CORONARY ARTERY BYPASS [None]
  - INFECTION [None]
